FAERS Safety Report 11602957 (Version 2)
Quarter: 2015Q4

REPORT INFORMATION
  Report Type: Spontaneous
  Country: JP (occurrence: None)
  Receive Date: 20151005
  Receipt Date: 20151015
  Transmission Date: 20160304
  Serious: Yes (Hospitalization)
  Sender: FDA-Public Use
  Company Number: 2015054341

PATIENT
  Age: 73 Year
  Sex: Female

DRUGS (2)
  1. THIAMAZOLE (THIAMAZOLE) [Suspect]
     Active Substance: METHIMAZOLE
     Indication: BASEDOW^S DISEASE
     Route: 048
  2. DESMOPRESSIN ACETATE (DESMOPRESSIN ACETATE) [Suspect]
     Active Substance: DESMOPRESSIN ACETATE
     Indication: DIABETES INSIPIDUS
     Dosage: INTRANASAL NASAL
     Route: 045

REACTIONS (7)
  - Product use issue [None]
  - Hypopituitarism [None]
  - Hyponatraemia [None]
  - Nasopharyngitis [None]
  - Prescribed overdose [None]
  - Dizziness [None]
  - Hypothyroidism [None]
